FAERS Safety Report 25484855 (Version 2)
Quarter: 2025Q3

REPORT INFORMATION
  Report Type: Spontaneous
  Country: JP (occurrence: JP)
  Receive Date: 20250626
  Receipt Date: 20250806
  Transmission Date: 20251020
  Serious: Yes (Hospitalization)
  Sender: SANDOZ
  Company Number: JP-SANDOZ-SDZ2025JP043566

PATIENT
  Age: 9 Decade
  Sex: Male

DRUGS (1)
  1. ARGATROBAN [Suspect]
     Active Substance: ARGATROBAN
     Indication: Cerebral infarction
     Route: 065

REACTIONS (2)
  - Muscle injury [Recovering/Resolving]
  - Haematoma muscle [Unknown]
